FAERS Safety Report 6214083-X (Version None)
Quarter: 2009Q2

REPORT INFORMATION
  Report Type: 
  Country: None (occurrence: None)
  Receive Date: 20090601
  Receipt Date: 20090601
  Transmission Date: 20091009
  Serious: Yes (Hospitalization)
  Sender: FDA-Public Use
  Company Number: None

PATIENT
  Age: 36 Year
  Sex: Male
  Weight: 77 kg

DRUGS (4)
  1. APAP W/ CODEINE [Suspect]
     Indication: OROPHARYNGEAL PAIN
     Dosage: 20 ONCE PO ONCE
     Route: 048
  2. LEXAPRO [Concomitant]
  3. AMBIEN [Concomitant]
  4. XANAX [Concomitant]

REACTIONS (2)
  - HAEMATEMESIS [None]
  - HEPATITIS ACUTE [None]
